FAERS Safety Report 10583878 (Version 1)
Quarter: 2014Q4

REPORT INFORMATION
  Report Type: Spontaneous
  Country: DK (occurrence: FR)
  Receive Date: 20141114
  Receipt Date: 20141114
  Transmission Date: 20150529
  Serious: Yes (Life-Threatening, Hospitalization)
  Sender: FDA-Public Use
  Company Number: FR-FRI-1000072344

PATIENT
  Age: 78 Year
  Sex: Female

DRUGS (3)
  1. CORDARONE [Interacting]
     Active Substance: AMIODARONE HYDROCHLORIDE
     Indication: ATRIAL FIBRILLATION
     Dosage: 1 DF DOSAGE FORM
     Route: 048
     Dates: start: 201408, end: 20140827
  2. ZOFENILDUO [Concomitant]
     Active Substance: HYDROCHLOROTHIAZIDE\ZOFENOPRIL
  3. ESCITALOPRAM [Suspect]
     Active Substance: ESCITALOPRAM OXALATE
     Indication: DEPRESSION
     Dosage: 1 DF DOSAGE FORM
     Route: 048
     Dates: start: 201408, end: 20140827

REACTIONS (4)
  - Drug interaction [Recovered/Resolved with Sequelae]
  - Electrocardiogram QT prolonged [Recovered/Resolved]
  - Bradycardia [Recovered/Resolved with Sequelae]
  - Malaise [Recovered/Resolved]

NARRATIVE: CASE EVENT DATE: 20140827
